FAERS Safety Report 8911726 (Version 2)
Quarter: 2012Q4

REPORT INFORMATION
  Report Type: 
  Country: DZ (occurrence: DZ)
  Receive Date: 20121116
  Receipt Date: 20121207
  Transmission Date: 20130627
  Serious: Yes (Other)
  Sender: FDA-Public Use
  Company Number: DZ-PFIZER INC-2012286205

PATIENT
  Age: 55 Year
  Sex: Female

DRUGS (1)
  1. LYRICA [Suspect]
     Dosage: 50 mg, 1x/day
     Dates: start: 20121001, end: 20121015

REACTIONS (11)
  - Lymphadenopathy [Recovered/Resolved]
  - Oedema peripheral [Recovered/Resolved]
  - Asthenopia [Recovered/Resolved]
  - Flushing [Recovered/Resolved]
  - Hepatocellular injury [Recovered/Resolved]
  - Oedema due to hepatic disease [Recovered/Resolved]
  - Polyuria [Recovered/Resolved]
  - Polydipsia [Recovered/Resolved]
  - Rash [Recovered/Resolved]
  - Blister [Recovered/Resolved]
  - Swollen tongue [Recovered/Resolved]
